FAERS Safety Report 18659157 (Version 3)
Quarter: 2021Q2

REPORT INFORMATION
  Report Type: Report from Study
  Country: IE (occurrence: IE)
  Receive Date: 20201224
  Receipt Date: 20210524
  Transmission Date: 20210717
  Serious: Yes (Hospitalization, Other)
  Sender: FDA-Public Use
  Company Number: IE-SHIRE-IE202016730

PATIENT
  Age: 53 Year
  Sex: Female

DRUGS (3)
  1. HUMAN IMMUNOGLOBULIN; HYALURONIDASE [Suspect]
     Active Substance: HUMAN IMMUNOGLOBULIN G\HYALURONIDASE RECOMBINANT HUMAN
     Dosage: 20 GRAM, PRN
     Route: 058
     Dates: start: 20200515
  2. HUMAN IMMUNOGLOBULIN; HYALURONIDASE [Suspect]
     Active Substance: HUMAN IMMUNOGLOBULIN G\HYALURONIDASE RECOMBINANT HUMAN
     Indication: HYPOGAMMAGLOBULINAEMIA
     Dosage: 20 GRAM, EVERY 4 WEEK
     Route: 058
     Dates: start: 20200505
  3. HUMAN IMMUNOGLOBULIN; HYALURONIDASE [Suspect]
     Active Substance: HUMAN IMMUNOGLOBULIN G\HYALURONIDASE RECOMBINANT HUMAN
     Indication: OSTEOMYELITIS
     Dosage: 20 GRAM, Q4WEEKS
     Route: 058
     Dates: start: 20200515

REACTIONS (4)
  - Lower respiratory tract infection [Not Recovered/Not Resolved]
  - Infusion site erythema [Recovering/Resolving]
  - Stem cell transplant [Not Recovered/Not Resolved]
  - Infusion site swelling [Recovering/Resolving]

NARRATIVE: CASE EVENT DATE: 20200515
